FAERS Safety Report 9487391 (Version 2)
Quarter: 2013Q3

REPORT INFORMATION
  Report Type: Spontaneous
  Country: US (occurrence: US)
  Receive Date: 20130725
  Receipt Date: 20130725
  Transmission Date: 20140515
  Serious: No
  Sender: FDA-Public Use
  Company Number: US-GLAXOSMITHKLINE-A0724620A

PATIENT
  Age: 42 Year
  Sex: Male
  Weight: 184.1 kg

DRUGS (10)
  1. AVANDIA [Suspect]
     Indication: DIABETES MELLITUS
     Dosage: 8MG PER DAY
     Route: 048
     Dates: start: 199907, end: 200707
  2. GLUCOPHAGE [Concomitant]
     Dates: start: 199906, end: 200101
  3. METFORMIN [Concomitant]
     Dates: start: 200305
  4. AMARYL [Concomitant]
     Dates: start: 200305
  5. ATENOLOL [Concomitant]
  6. LIPITOR [Concomitant]
  7. ZOCOR [Concomitant]
     Dates: start: 200702, end: 200711
  8. VASOTEC [Concomitant]
  9. RELAFEN [Concomitant]
  10. ASPIRIN [Concomitant]

REACTIONS (2)
  - Obesity [Not Recovered/Not Resolved]
  - Weight increased [Unknown]
